FAERS Safety Report 15574913 (Version 1)
Quarter: 2018Q4

REPORT INFORMATION
  Report Type: Spontaneous
  Country: BE (occurrence: BE)
  Receive Date: 20181101
  Receipt Date: 20181101
  Transmission Date: 20190205
  Serious: Yes (Other)
  Sender: FDA-Public Use
  Company Number: BE-LPDUSPRD-20182021

PATIENT
  Sex: Female

DRUGS (1)
  1. FERINJECT [Suspect]
     Active Substance: FERRIC CARBOXYMALTOSE
     Dosage: UNKNOWN
     Route: 065

REACTIONS (3)
  - Hyperhidrosis [Unknown]
  - Nausea [Unknown]
  - Hypotension [Unknown]
